FAERS Safety Report 10759072 (Version 3)
Quarter: 2015Q2

REPORT INFORMATION
  Report Type: Spontaneous
  Country: US (occurrence: US)
  Receive Date: 20150203
  Receipt Date: 20150423
  Transmission Date: 20150821
  Serious: Yes (Death, Hospitalization, Other)
  Sender: FDA-Public Use
  Company Number: US-MERCK-1502USA000538

PATIENT
  Sex: Male
  Weight: 70.3 kg

DRUGS (1)
  1. JANUVIA [Suspect]
     Active Substance: SITAGLIPTIN PHOSPHATE
     Indication: TYPE 2 DIABETES MELLITUS
     Dosage: 100 MG, QD
     Route: 048
     Dates: start: 20081107, end: 20121228

REACTIONS (10)
  - Pancreatic carcinoma metastatic [Fatal]
  - Renal cyst [Unknown]
  - Hyperadrenalism [Unknown]
  - Nephropathy [Unknown]
  - Anuria [Unknown]
  - Inguinal hernia [Unknown]
  - Umbilical hernia [Unknown]
  - Arthritis [Unknown]
  - Prostatomegaly [Unknown]
  - Metastases to liver [Unknown]

NARRATIVE: CASE EVENT DATE: 20121204
